FAERS Safety Report 9769873 (Version 1)
Quarter: 2013Q4

REPORT INFORMATION
  Report Type: Spontaneous
  Country: US (occurrence: US)
  Receive Date: 20131218
  Receipt Date: 20131218
  Transmission Date: 20140711
  Serious: No
  Sender: FDA-Public Use
  Company Number: US-VERTEX PHARMACEUTICALS INC-AE-2011-000661

PATIENT
  Age: 62 Year
  Sex: Female
  Weight: 65.91 kg

DRUGS (3)
  1. INCIVEK [Suspect]
     Indication: HEPATITIS C
     Dates: start: 20110713
  2. PEGASYS [Concomitant]
     Indication: HEPATITIS C
     Route: 058
     Dates: start: 20110713
  3. RIBASPHERE [Concomitant]
     Indication: HEPATITIS C
     Route: 048
     Dates: start: 20110713

REACTIONS (10)
  - Vision blurred [Not Recovered/Not Resolved]
  - Headache [Not Recovered/Not Resolved]
  - Skin injury [Not Recovered/Not Resolved]
  - Haematochezia [Not Recovered/Not Resolved]
  - Asthenia [Not Recovered/Not Resolved]
  - Fatigue [Not Recovered/Not Resolved]
  - Haemorrhoids [Not Recovered/Not Resolved]
  - Frequent bowel movements [Not Recovered/Not Resolved]
  - Diarrhoea [Not Recovered/Not Resolved]
  - Anorectal discomfort [Not Recovered/Not Resolved]
